FAERS Safety Report 5612421-X (Version None)
Quarter: 2008Q1

REPORT INFORMATION
  Report Type: 
  Country: None (occurrence: None)
  Receive Date: 20080204
  Receipt Date: 20080124
  Transmission Date: 20080703
  Serious: Yes (Disabling)
  Sender: FDA-Public Use
  Company Number: US-MERCK-0706USA00871

PATIENT
  Age: 56 Year
  Sex: Male

DRUGS (2)
  1. FOSAMAX [Suspect]
     Indication: OSTEOPOROSIS
     Route: 048
     Dates: start: 19970101
  2. FOSAMAX [Suspect]
     Route: 048
     Dates: end: 20050101

REACTIONS (9)
  - ANXIETY [None]
  - ASTHMA [None]
  - DEPRESSION [None]
  - DIABETES MELLITUS [None]
  - INFLUENZA LIKE ILLNESS [None]
  - MUSCULAR WEAKNESS [None]
  - PAIN [None]
  - RESORPTION BONE INCREASED [None]
  - STOMATITIS [None]
